FAERS Safety Report 7799699-1 (Version None)
Quarter: 2011Q4

REPORT INFORMATION
  Report Type: 
  Country: None (occurrence: None)
  Receive Date: 20111006
  Receipt Date: 20110928
  Transmission Date: 20120403
  Serious: Yes (Other)
  Sender: FDA-Public Use
  Company Number: JP-BAYER-2011-062687

PATIENT
  Age: 80 Year
  Sex: Male

DRUGS (7)
  1. NEXAVAR [Suspect]
     Indication: RENAL CELL CARCINOMA
     Dosage: DAILY DOSE 800 MG
     Route: 048
     Dates: end: 20110706
  2. NEXAVAR [Suspect]
     Dosage: UNK
     Route: 048
     Dates: start: 20110913, end: 20110927
  3. AMLODIPINE [Concomitant]
     Route: 048
  4. LANSOPRAZOLE [Concomitant]
     Route: 048
  5. OLMESARTAN MEDOXOMIL [Concomitant]
     Route: 048
  6. NATEGLINIDE [Concomitant]
     Route: 048
  7. ACTOS [Concomitant]
     Route: 048

REACTIONS (2)
  - DIABETIC NEPHROPATHY [None]
  - PALMAR-PLANTAR ERYTHRODYSAESTHESIA SYNDROME [None]
